FAERS Safety Report 4784472-9 (Version None)
Quarter: 2005Q3

REPORT INFORMATION
  Report Type: 
  Country: None (occurrence: None)
  Receive Date: 20050929
  Receipt Date: 20050929
  Transmission Date: 20060218
  Serious: Yes (Hospitalization, Other)
  Sender: FDA-Public Use
  Company Number: None

PATIENT
  Sex: Male
  Weight: 89.1 kg

DRUGS (5)
  1. CISPLATIN [Suspect]
     Indication: SMALL CELL LUNG CANCER STAGE UNSPECIFIED
     Dosage: SEE IMAGE
     Route: 042
     Dates: start: 20050907, end: 20050907
  2. CISPLATIN [Suspect]
     Indication: SMALL CELL LUNG CANCER STAGE UNSPECIFIED
     Dosage: SEE IMAGE
     Route: 042
     Dates: start: 20050909
  3. ETOPOSIDE [Suspect]
     Dosage: SEE IMAGE
     Route: 042
     Dates: start: 20050907, end: 20050909
  4. ETOPOSIDE [Suspect]
     Dosage: SEE IMAGE
     Route: 042
     Dates: start: 20050909
  5. RADIATION THERAPY [Suspect]
     Dosage: SEE IMAGE
     Dates: start: 20050909

REACTIONS (3)
  - FEBRILE NEUTROPENIA [None]
  - OESOPHAGITIS [None]
  - RADIATION DYSPHAGIA [None]
